FAERS Safety Report 10238074 (Version 7)
Quarter: 2014Q3

REPORT INFORMATION
  Report Type: Spontaneous
  Country: US (occurrence: US)
  Receive Date: 20140616
  Receipt Date: 20140730
  Transmission Date: 20150326
  Serious: Yes (Death, Other)
  Sender: FDA-Public Use
  Company Number: US-JNJFOC-20140609696

PATIENT

DRUGS (1)
  1. REMICADE [Suspect]
     Active Substance: INFLIXIMAB
     Indication: CROHN^S DISEASE
     Dosage: ON INFLIXIMAB FOR 10 YEAR.
     Route: 042

REACTIONS (2)
  - Death [Fatal]
  - Glioblastoma [Unknown]

NARRATIVE: CASE EVENT DATE: 2012
